FAERS Safety Report 9105214 (Version 1)
Quarter: 2013Q1

REPORT INFORMATION
  Report Type: Spontaneous
  Country: IT (occurrence: IT)
  Receive Date: 20130220
  Receipt Date: 20130220
  Transmission Date: 20140127
  Serious: Yes (Other)
  Sender: FDA-Public Use
  Company Number: IT-BRISTOL-MYERS SQUIBB COMPANY-17373077

PATIENT
  Age: 74 Year
  Sex: Female

DRUGS (11)
  1. COUMADIN TABS 5 MG [Suspect]
     Indication: PROPHYLAXIS
     Dosage: COUMADIN ^5 MG TABLETS^ DOSAGE/1/UNIT
     Route: 048
     Dates: start: 20000101, end: 20121201
  2. CITALOPRAM HYDROBROMIDE [Concomitant]
     Route: 048
  3. SALMETEROL XINAFOATE+FLUTICASONE PROP [Concomitant]
     Route: 055
  4. LOSARTAN POTASSIUM [Concomitant]
  5. GLICLAZIDE [Concomitant]
     Route: 048
  6. ALDACTONE [Concomitant]
     Dosage: ALDACTONE ^25 MG TABLETS
     Route: 048
  7. LASIX [Concomitant]
     Dosage: LASIX ^25 MG TABLETS
     Route: 048
  8. COLCHICINE [Concomitant]
     Dosage: COLCHICINE LIRCA ^1 MG TABLETS
     Route: 048
  9. SPIRIVA [Concomitant]
     Dosage: SPIRIVA 18 MCG CAPS
  10. CARDIOASPIRIN [Concomitant]
     Dosage: TABS
     Route: 048
  11. PLAVIX [Concomitant]
     Dosage: PLAVIX ^75 MG TABLETS
     Route: 048

REACTIONS (2)
  - Epistaxis [Recovered/Resolved]
  - Pericardial effusion [Unknown]
